FAERS Safety Report 8829476 (Version 3)
Quarter: 2013Q3

REPORT INFORMATION
  Report Type: Spontaneous
  Country: US (occurrence: US)
  Receive Date: 20121008
  Receipt Date: 20130705
  Transmission Date: 20140515
  Serious: No
  Sender: FDA-Public Use
  Company Number: US-009507513-1210USA002059

PATIENT
  Age: 22 Year
  Sex: Female
  Weight: 68.39 kg

DRUGS (2)
  1. NEXPLANON [Suspect]
     Indication: CONTRACEPTION
     Dosage: 1 DF, UNK
     Route: 059
     Dates: start: 20120912, end: 20130423
  2. CELEXA [Concomitant]

REACTIONS (4)
  - Erythema [Recovered/Resolved]
  - Skin mass [Unknown]
  - Rash [Recovered/Resolved]
  - Pruritus [Recovered/Resolved]
